FAERS Safety Report 19944386 (Version 3)
Quarter: 2021Q4

REPORT INFORMATION
  Report Type: Spontaneous
  Country: US (occurrence: None)
  Receive Date: 20211012
  Receipt Date: 20211129
  Transmission Date: 20220304
  Serious: No
  Sender: FDA-Public Use
  Company Number: 2021A750502

PATIENT
  Age: 25567 Day
  Sex: Male
  Weight: 116.6 kg

DRUGS (1)
  1. BYDUREON BCISE [Suspect]
     Active Substance: EXENATIDE
     Indication: Type 2 diabetes mellitus
     Route: 058
     Dates: start: 20210716

REACTIONS (6)
  - Injection site pain [Recovered/Resolved]
  - Injection site indentation [Recovered/Resolved]
  - Device leakage [Unknown]
  - Incorrect dose administered by device [Recovered/Resolved]
  - Drug dose omission by device [Unknown]
  - Needle issue [Unknown]

NARRATIVE: CASE EVENT DATE: 20210716
